FAERS Safety Report 6491221-5 (Version None)
Quarter: 2009Q4

REPORT INFORMATION
  Report Type: 
  Country: None (occurrence: None)
  Receive Date: 20091211
  Receipt Date: 20091201
  Transmission Date: 20100525
  Serious: Yes (Hospitalization)
  Sender: FDA-Public Use
  Company Number: PHHY2009IE53329

PATIENT

DRUGS (2)
  1. CLOZARIL [Suspect]
     Indication: SCHIZOPHRENIA
     Dosage: UNK
     Dates: start: 20040805
  2. TRIMETHOPRIM [Concomitant]
     Dosage: UNK
     Dates: start: 20091130

REACTIONS (4)
  - KIDNEY INFECTION [None]
  - LIPOEDEMA [None]
  - RASH MACULAR [None]
  - SOMNOLENCE [None]
